FAERS Safety Report 10194008 (Version 1)
Quarter: 2014Q2

REPORT INFORMATION
  Report Type: Spontaneous
  Country: US (occurrence: US)
  Receive Date: 20140524
  Receipt Date: 20140524
  Transmission Date: 20141212
  Serious: No
  Sender: FDA-Public Use
  Company Number: US-SANOFI-AVENTIS-2013SA074313

PATIENT
  Age: 71 Year
  Sex: Male
  Weight: 104 kg

DRUGS (2)
  1. LANTUS SOLOSTAR [Suspect]
     Indication: TYPE 1 DIABETES MELLITUS
     Dosage: PRODUCT STARTED FOR MORE THAN 6 MONTHS DOSE:55 UNIT(S)
     Route: 051
     Dates: start: 20000101
  2. SOLOSTAR [Concomitant]
     Indication: TYPE 1 DIABETES MELLITUS
     Dosage: PRODUCT STARTED MORE THAN 6 MONTHS
     Dates: start: 20000101

REACTIONS (1)
  - Glycosylated haemoglobin increased [Unknown]
